FAERS Safety Report 7160774-6 (Version None)
Quarter: 2010Q4

REPORT INFORMATION
  Report Type: 
  Country: None (occurrence: None)
  Receive Date: 20101214
  Receipt Date: 20091124
  Transmission Date: 20110411
  Serious: Yes (Other)
  Sender: FDA-Public Use
  Company Number: US-AMGEN-KDL376521

PATIENT

DRUGS (1)
  1. ENBREL [Suspect]
     Indication: PRODUCT USED FOR UNKNOWN INDICATION
     Dosage: 50 MG, QWK
     Route: 058
     Dates: start: 20091109, end: 20091111

REACTIONS (1)
  - BREAST CANCER [None]
